FAERS Safety Report 24941792 (Version 1)
Quarter: 2025Q1

REPORT INFORMATION
  Report Type: Spontaneous
  Country: US (occurrence: US)
  Receive Date: 20250207
  Receipt Date: 20250207
  Transmission Date: 20250409
  Serious: Yes (Other)
  Sender: SANDOZ
  Company Number: US-SANDOZ-SDZ2025US005619

PATIENT
  Age: 57 Year
  Sex: Male

DRUGS (36)
  1. AZITHROMYCIN [Suspect]
     Active Substance: AZITHROMYCIN
     Indication: Mycobacterium chelonae infection
     Route: 065
  2. AZITHROMYCIN [Suspect]
     Active Substance: AZITHROMYCIN
     Indication: Arthritis bacterial
  3. CIPROFLOXACIN [Suspect]
     Active Substance: CIPROFLOXACIN
     Indication: Mycobacterium chelonae infection
     Route: 065
  4. CIPROFLOXACIN [Suspect]
     Active Substance: CIPROFLOXACIN
     Indication: Arthritis bacterial
  5. DOXYCYCLINE [Suspect]
     Active Substance: DOXYCYCLINE
     Indication: Mycobacterium chelonae infection
     Route: 065
  6. DOXYCYCLINE [Suspect]
     Active Substance: DOXYCYCLINE
     Indication: Arthritis bacterial
  7. LINEZOLID [Suspect]
     Active Substance: LINEZOLID
     Indication: Mycobacterium chelonae infection
     Route: 065
  8. LINEZOLID [Suspect]
     Active Substance: LINEZOLID
     Indication: Arthritis bacterial
  9. MOXIFLOXACIN [Suspect]
     Active Substance: MOXIFLOXACIN
     Indication: Mycobacterium chelonae infection
     Route: 065
  10. MOXIFLOXACIN [Suspect]
     Active Substance: MOXIFLOXACIN
     Indication: Arthritis bacterial
  11. Artificial tears [Concomitant]
     Indication: Dry eye
     Dosage: 2 DROP, BID (ADMINISTER 2 DROPS INTO BOTH EYES 2 TIMES DAILY AS NEEDED FOR DRYEYES)
     Route: 065
  12. ASPIRIN [Concomitant]
     Active Substance: ASPIRIN
     Indication: Product used for unknown indication
     Route: 065
     Dates: start: 20240904
  13. CHOLECALCIFEROL [Concomitant]
     Active Substance: CHOLECALCIFEROL
     Indication: Product used for unknown indication
     Route: 048
  14. CIPRO [Concomitant]
     Active Substance: CIPROFLOXACIN HYDROCHLORIDE
     Indication: Product used for unknown indication
     Dosage: 1 DF, BID (DISPENSE: 180 TABLET, REFILL:1)
     Route: 048
     Dates: start: 20250109, end: 20250117
  15. CLARITIN [Concomitant]
     Active Substance: LORATADINE
     Indication: Product used for unknown indication
     Route: 048
     Dates: start: 20240613
  16. DELTASONE [Concomitant]
     Active Substance: PREDNISONE
     Indication: Product used for unknown indication
     Route: 048
  17. DILAUDID [Concomitant]
     Active Substance: HYDROMORPHONE HYDROCHLORIDE
     Indication: Product used for unknown indication
     Dosage: 2 DROP, Q6H ADMINISTER 2 DROPS INTO MOUTH EVERY 6 HOURSAS NEEDED FOR SEVERE PAIN (PAIN SCALE 7-10) O
     Route: 048
     Dates: start: 20241202, end: 20250116
  18. ELIQUIS [Concomitant]
     Active Substance: APIXABAN
     Indication: Product used for unknown indication
     Dosage: 1 DF, BID (DISPENSE: 180 TABLET, REFILL:0)
     Route: 048
     Dates: start: 20241007, end: 20250121
  19. ENVARSUS XR [Concomitant]
     Active Substance: TACROLIMUS
     Indication: Product used for unknown indication
     Route: 048
     Dates: start: 20240613
  20. ENVARSUS XR [Concomitant]
     Active Substance: TACROLIMUS
     Indication: Product used for unknown indication
     Route: 048
     Dates: start: 20240613
  21. FLONASE [Concomitant]
     Active Substance: FLUTICASONE PROPIONATE
     Indication: Product used for unknown indication
     Route: 065
     Dates: start: 20240524
  22. GLUCAGON [Concomitant]
     Active Substance: GLUCAGON
     Indication: Hypoglycaemia
     Route: 065
  23. LIPITOR [Concomitant]
     Active Substance: ATORVASTATIN CALCIUM
     Indication: Product used for unknown indication
     Route: 048
     Dates: start: 20241106
  24. Mag tab [Concomitant]
     Indication: Product used for unknown indication
     Dosage: 1 DF, BID (DISPENSE: 60 TABLET, REFILL:0)
     Route: 048
     Dates: start: 20240613
  25. MICATIN [Concomitant]
     Active Substance: MICONAZOLE NITRATE
     Indication: Product used for unknown indication
     Dosage: 1 G, BID APPLY TO GROIN AREA BILATERALLY (DISPENSE: 70 G, REFILL:0)
     Route: 061
     Dates: start: 20240904
  26. NARCAN [Concomitant]
     Active Substance: NALOXONE HYDROCHLORIDE
     Indication: Product used for unknown indication
     Route: 065
     Dates: start: 20240814
  27. NITROSTAT [Concomitant]
     Active Substance: NITROGLYCERIN
     Indication: Chest pain
     Route: 065
     Dates: start: 20240613
  28. NOVOLOG [Concomitant]
     Active Substance: INSULIN ASPART
     Indication: Product used for unknown indication
     Route: 065
  29. PROTONIX [Concomitant]
     Active Substance: PANTOPRAZOLE SODIUM
     Indication: Product used for unknown indication
     Dosage: 1 DF, BID (DISPENSE: 180 TABLET, REFILL: 3)
     Route: 048
     Dates: start: 20241111
  30. ROBAXIN [Concomitant]
     Active Substance: METHOCARBAMOL
     Indication: Muscle spasms
     Dosage: 2 DF, QD (DISPENSE: 30 TABLET, REFILL:0)
     Route: 048
     Dates: start: 20240613
  31. TOPROL XL [Concomitant]
     Active Substance: METOPROLOL SUCCINATE
     Indication: Coronary artery disease
     Dosage: 1 DF, BID 24 HR TABLET (DISPENSE: 60 TABLET, REFILL; 0)
     Route: 048
     Dates: start: 20241012
  32. TUMS [Concomitant]
     Active Substance: CALCIUM CARBONATE
     Indication: Dyspepsia
     Route: 065
  33. VIBRAMYCIN [Concomitant]
     Active Substance: DOXYCYCLINE
     Indication: Product used for unknown indication
     Dosage: 1 DF, BID TAKE 1 CAPSULE BY MOUTH 2 TIMES DAILY FOR 180 DAYS. ADMINISTER CAPSULE AND TABLET WITH AT
     Route: 048
     Dates: start: 20250109, end: 20250117
  34. VITAMIN C [Concomitant]
     Active Substance: ASCORBIC ACID
     Indication: Product used for unknown indication
     Route: 048
     Dates: start: 20240613
  35. Vitamin a + d [Concomitant]
     Indication: Product used for unknown indication
     Route: 065
  36. ZITHROMAX [Concomitant]
     Active Substance: AZITHROMYCIN DIHYDRATE
     Indication: Product used for unknown indication
     Dosage: 1 DF, QD (DISPENSE: 90 TABLET, REFILL:1)
     Route: 048
     Dates: start: 20250109

REACTIONS (64)
  - Erectile dysfunction [Unknown]
  - Arteriosclerosis coronary artery [Unknown]
  - Impaired gastric emptying [Unknown]
  - Gangrene [Unknown]
  - Mycobacterium chelonae infection [Unknown]
  - Neuropathy peripheral [Unknown]
  - Deep vein thrombosis [Unknown]
  - Urinary retention [Unknown]
  - Chronic kidney disease-mineral and bone disorder [Unknown]
  - Type 1 diabetes mellitus [Unknown]
  - Ischaemic cardiomyopathy [Unknown]
  - Tractional retinal detachment [Unknown]
  - Vitreous haemorrhage [Unknown]
  - Osteomyelitis [Unknown]
  - Clostridium difficile infection [Unknown]
  - Polyomavirus viraemia [Unknown]
  - Transient ischaemic attack [Unknown]
  - Coeliac artery stenosis [Unknown]
  - Insulin therapy [Unknown]
  - Obstructive sleep apnoea syndrome [Unknown]
  - Hypertension [Unknown]
  - Hyperlipidaemia [Unknown]
  - Vitamin D deficiency [Unknown]
  - Osteoarthritis [Unknown]
  - Hyperglycaemia [Unknown]
  - Diabetic autonomic neuropathy [Unknown]
  - Constipation [Unknown]
  - Leg amputation [Unknown]
  - Spinal osteoarthritis [Unknown]
  - Postoperative wound infection [Unknown]
  - Diabetic foot [Unknown]
  - Peritoneal dialysis [Unknown]
  - Hypomagnesaemia [Unknown]
  - Hypocalcaemia [Unknown]
  - Anaemia of chronic disease [Unknown]
  - Neuralgia [Unknown]
  - Dry eye [Unknown]
  - Hypoaesthesia [Unknown]
  - Renal transplant [Unknown]
  - Malnutrition [Unknown]
  - Foot amputation [Unknown]
  - Orthostatic hypotension [Unknown]
  - Vertigo [Unknown]
  - Traumatic ulcer [Unknown]
  - Skin ulcer [Unknown]
  - Skin lesion [Unknown]
  - Diabetic foot [Unknown]
  - Peripheral vascular disorder [Unknown]
  - Gastrooesophageal reflux disease [Unknown]
  - Oesophagitis [Unknown]
  - Visual impairment [Unknown]
  - Leg amputation [Unknown]
  - Decubitus ulcer [Unknown]
  - Dysphagia [Unknown]
  - Hypersensitivity [Unknown]
  - Diabetic retinopathy [Unknown]
  - Ear pain [Unknown]
  - Anxiety [Unknown]
  - Eustachian tube dysfunction [Unknown]
  - Rhinitis allergic [Unknown]
  - Pain [Unknown]
  - Chest pain [Unknown]
  - Amputation [Unknown]
  - Skin ulcer [Unknown]
